FAERS Safety Report 25720870 (Version 1)
Quarter: 2025Q3

REPORT INFORMATION
  Report Type: Spontaneous
  Country: BR (occurrence: BR)
  Receive Date: 20250825
  Receipt Date: 20250825
  Transmission Date: 20251021
  Serious: Yes (Other)
  Sender: BRISTOL-MYERS SQUIBB COMPANY
  Company Number: BR-BRISTOL-MYERS SQUIBB COMPANY-2025-114913

PATIENT
  Age: 73 Year
  Sex: Male

DRUGS (1)
  1. VIDAZA [Suspect]
     Active Substance: AZACITIDINE
     Indication: Myelodysplastic syndrome

REACTIONS (5)
  - Acute graft versus host disease in intestine [Unknown]
  - Aspergillus infection [Unknown]
  - Cytomegalovirus infection reactivation [Unknown]
  - Acute graft versus host disease in liver [Unknown]
  - Acute graft versus host disease in skin [Unknown]
